FAERS Safety Report 7620488-2 (Version None)
Quarter: 2011Q3

REPORT INFORMATION
  Report Type: 
  Country: None (occurrence: None)
  Receive Date: 20110719
  Receipt Date: 20110713
  Transmission Date: 20111222
  Serious: Yes (Other)
  Sender: FDA-Public Use
  Company Number: JP-PFIZER INC-2011158811

PATIENT
  Age: 72 Year
  Sex: Male

DRUGS (3)
  1. MELOXICAM [Concomitant]
     Dosage: UNK
  2. FAMOTIDINE [Concomitant]
     Dosage: UNK
  3. LYRICA [Suspect]
     Dosage: UNK
     Route: 048
     Dates: start: 20110712

REACTIONS (1)
  - BLOOD GLUCOSE INCREASED [None]
